FAERS Safety Report 20357383 (Version 1)
Quarter: 2022Q1

REPORT INFORMATION
  Report Type: Report from Study
  Country: US (occurrence: US)
  Receive Date: 20220120
  Receipt Date: 20220120
  Transmission Date: 20220423
  Serious: Yes (Death, Other)
  Sender: FDA-Public Use
  Company Number: US-TAKEDA-US201840741

PATIENT
  Sex: Female
  Weight: 40 kg

DRUGS (2)
  1. TEDUGLUTIDE [Suspect]
     Active Substance: TEDUGLUTIDE
     Indication: Short-bowel syndrome
     Dosage: 0.107 MILLILITER, QD
     Route: 050
  2. TEDUGLUTIDE [Suspect]
     Active Substance: TEDUGLUTIDE
     Dosage: 0.11 MILLILITER, 2/WEEK
     Route: 058

REACTIONS (3)
  - Pneumonia [Fatal]
  - General physical health deterioration [Fatal]
  - Nausea [Unknown]
